FAERS Safety Report 18112233 (Version 2)
Quarter: 2020Q3

REPORT INFORMATION
  Report Type: Spontaneous
  Country: CZ (occurrence: CZ)
  Receive Date: 20200805
  Receipt Date: 20200817
  Transmission Date: 20201103
  Serious: Yes (Death, Life-Threatening, Hospitalization, Other)
  Sender: FDA-Public Use
  Company Number: CZ-ALEXION-A202011120

PATIENT
  Age: 8 Year
  Sex: Female

DRUGS (3)
  1. SOLIRIS [Suspect]
     Active Substance: ECULIZUMAB
     Indication: OFF LABEL USE
  2. SOLIRIS [Suspect]
     Active Substance: ECULIZUMAB
     Indication: HAEMOLYTIC URAEMIC SYNDROME
  3. SOLIRIS [Suspect]
     Active Substance: ECULIZUMAB
     Indication: GASTROENTERITIS ESCHERICHIA COLI
     Dosage: 600 MG, SINGLE
     Route: 065
     Dates: start: 20200713

REACTIONS (3)
  - Cerebral haemorrhage [Fatal]
  - Myocardial ischaemia [Fatal]
  - Off label use [Unknown]

NARRATIVE: CASE EVENT DATE: 20200713
